FAERS Safety Report 7666936-3 (Version None)
Quarter: 2011Q3

REPORT INFORMATION
  Report Type: 
  Country: None (occurrence: None)
  Receive Date: 20110806
  Receipt Date: 20110301
  Transmission Date: 20111222
  Serious: No
  Sender: FDA-Public Use
  Company Number: US-ABBOTT-11P-163-0708358-00

PATIENT
  Sex: Female

DRUGS (3)
  1. NIASPAN [Suspect]
     Indication: PRODUCT USED FOR UNKNOWN INDICATION
     Dosage: IN THE MORNING
     Dates: start: 20110225, end: 20110225
  2. LIPITOR [Concomitant]
     Indication: PRODUCT USED FOR UNKNOWN INDICATION
  3. ASPIRIN [Concomitant]
     Indication: PRODUCT USED FOR UNKNOWN INDICATION
     Dosage: DID NOT TAKE AS RECOMMENDED BY MD

REACTIONS (6)
  - ADVERSE DRUG REACTION [None]
  - PYREXIA [None]
  - HOT FLUSH [None]
  - FLUSHING [None]
  - PRURITUS GENERALISED [None]
  - ERYTHEMA [None]
